FAERS Safety Report 6843738-9 (Version None)
Quarter: 2010Q3

REPORT INFORMATION
  Report Type: 
  Country: None (occurrence: None)
  Receive Date: 20100715
  Receipt Date: 20100705
  Transmission Date: 20110219
  Serious: Yes (Life-Threatening)
  Sender: FDA-Public Use
  Company Number: JP-AMGEN-QUU419710

PATIENT
  Sex: Female
  Weight: 56 kg

DRUGS (11)
  1. ENBREL [Suspect]
     Indication: RHEUMATOID ARTHRITIS
     Dosage: SOLUTION FOR INJECTION; 25 MG 2 X PER 1 WEEK
     Route: 058
     Dates: start: 20081205, end: 20091220
  2. ENBREL [Suspect]
     Dosage: LYOPHILIZED; 25 MG 2 X PER 1 WEEK
     Route: 058
     Dates: start: 20080304
  3. ENBREL [Suspect]
     Dosage: SOLUTION FOR INJECTION; 25 MG 2 X PER 1 WEEK
     Route: 058
     Dates: end: 20100613
  4. RHEUMATREX [Concomitant]
     Indication: RHEUMATOID ARTHRITIS
     Route: 048
     Dates: start: 20030903
  5. TENORMIN [Concomitant]
     Indication: HYPERTENSION
     Route: 048
  6. KETOPROFEN [Concomitant]
  7. LAMISIL [Concomitant]
     Indication: ONYCHOMYCOSIS
     Route: 048
     Dates: start: 20090511
  8. MAGNESIUM OXIDE [Concomitant]
     Indication: CONSTIPATION
     Route: 048
  9. EVISTA [Concomitant]
     Indication: OSTEOPOROSIS
     Route: 048
  10. THYRADIN [Concomitant]
     Indication: HYPOTHYROIDISM
     Route: 048
  11. FOLIAMIN [Concomitant]
     Route: 048
     Dates: start: 20061010

REACTIONS (1)
  - LUNG NEOPLASM MALIGNANT [None]
